FAERS Safety Report 8533310-7 (Version None)
Quarter: 2012Q2

REPORT INFORMATION
  Report Type: 
  Country: None (occurrence: None)
  Receive Date: 20120412
  Receipt Date: 20120209
  Transmission Date: 20120825
  Serious: Yes (Other)
  Sender: FDA-Public Use
  Company Number: 2012S1000006

PATIENT
  Age: 54 Year
  Sex: Male

DRUGS (7)
  1. PREDNISONE [Concomitant]
  2. LISIONPRIL [Concomitant]
  3. KRYSTEXXA [Suspect]
     Indication: GOUT
     Dosage: 8 MG;QOM;IV
     Route: 042
     Dates: start: 20110809, end: 20111220
  4. COLCRYS [Concomitant]
  5. LIPITOR [Concomitant]
  6. METFORMIN HYDROCHLORIDE [Concomitant]
  7. ALLOPURINOL [Concomitant]

REACTIONS (3)
  - INFUSION RELATED REACTION [None]
  - FALL [None]
  - JOINT INJURY [None]
